FAERS Safety Report 6273675-2 (Version None)
Quarter: 2009Q3

REPORT INFORMATION
  Report Type: 
  Country: None (occurrence: None)
  Receive Date: 20090713
  Receipt Date: 20080604
  Transmission Date: 20100115
  Serious: Yes (Hospitalization)
  Sender: FDA-Public Use
  Company Number: 568367

PATIENT
  Age: 68 Year
  Sex: Female
  Weight: 68.9 kg

DRUGS (5)
  1. BONIVA [Suspect]
     Indication: OSTEOPOROSIS
     Dosage: 150 MG ORAL
     Route: 048
     Dates: start: 20070601
  2. NEXIUM [Concomitant]
  3. LISINOPRIL [Concomitant]
  4. ASPIRIN [Concomitant]
  5. ANALGESIC NOS (ANALGESIC NOS) [Concomitant]

REACTIONS (2)
  - PAIN [None]
  - STAPHYLOCOCCAL INFECTION [None]
